FAERS Safety Report 6305711-9 (Version None)
Quarter: 2009Q3

REPORT INFORMATION
  Report Type: 
  Country: None (occurrence: None)
  Receive Date: 20090812
  Receipt Date: 20071211
  Transmission Date: 20100115
  Serious: Yes (Other)
  Sender: FDA-Public Use
  Company Number: US-ASTRAZENECA-2006UW21789

PATIENT
  Age: 14443 Day
  Sex: Female
  Weight: 93.4 kg

DRUGS (28)
  1. SEROQUEL [Suspect]
     Indication: DEPRESSION
     Dosage: 100 - 400 MG
     Route: 048
     Dates: start: 20021211
  2. SEROQUEL [Suspect]
     Indication: BIPOLAR DISORDER
     Dosage: 100 - 400 MG
     Route: 048
     Dates: start: 20021211
  3. SEROQUEL [Suspect]
     Route: 048
     Dates: start: 20030501, end: 20040601
  4. SEROQUEL [Suspect]
     Route: 048
     Dates: start: 20030501, end: 20040601
  5. COUMADIN [Concomitant]
     Dates: start: 20030623
  6. ASPIRIN [Concomitant]
     Dosage: 325 MG 2 DAILY
     Dates: start: 20030623
  7. LASIX [Concomitant]
     Dosage: 20 - 40 MG
     Dates: start: 20030623
  8. ZOLOFT [Concomitant]
     Dosage: 100 MG 2 DAILY
     Dates: start: 20030623
  9. LORAZEPAM [Concomitant]
     Dosage: 0.5 MG, 1 PRN
     Dates: start: 20021028
  10. POTASSIUM CHLORIDE [Concomitant]
     Dates: start: 20030623
  11. TRAZODONE HCL [Concomitant]
     Dates: start: 20020823
  12. EFFEXOR XR [Concomitant]
     Dosage: 37.5 - 150 MG
     Dates: start: 20020823
  13. HYDROXYZINE PAM [Concomitant]
     Dates: start: 20020905
  14. AMBIEN [Concomitant]
     Dates: start: 20020924
  15. WELLBUTRIN SR [Concomitant]
     Dates: start: 20021028
  16. RISPERDAL [Concomitant]
     Dosage: 1 - 2 MG
     Dates: start: 20021028
  17. PAXIL CR [Concomitant]
     Dates: start: 20030124
  18. ABILIFY [Concomitant]
     Dates: start: 20030203
  19. CLONAZEPAM [Concomitant]
     Dates: start: 20030214
  20. DIAZEPAM [Concomitant]
     Dates: start: 20060418
  21. NAPROSYN [Concomitant]
     Dates: start: 20060418
  22. AVANDIA [Concomitant]
     Dates: start: 20060418
  23. CYMBALTA [Concomitant]
     Dates: start: 20060418
  24. SPIRONOLACTONE [Concomitant]
     Dates: start: 20060321
  25. NEXIUM [Concomitant]
     Dates: start: 20060321
  26. SKELAXIN [Concomitant]
     Dates: start: 20060321
  27. PROMETHAZINE [Concomitant]
     Dates: start: 20060321
  28. KEPPRA [Concomitant]
     Dates: start: 20060321

REACTIONS (4)
  - DIABETES MELLITUS [None]
  - NEUROPATHY PERIPHERAL [None]
  - PANCREATITIS [None]
  - TYPE 2 DIABETES MELLITUS [None]
